FAERS Safety Report 18530734 (Version 1)
Quarter: 2020Q4

REPORT INFORMATION
  Report Type: Report from Study
  Country: CO (occurrence: CO)
  Receive Date: 20201121
  Receipt Date: 20201121
  Transmission Date: 20210114
  Serious: Yes (Other)
  Sender: FDA-Public Use
  Company Number: NVSC2020CO304275

PATIENT
  Sex: Female
  Weight: 70 kg

DRUGS (2)
  1. LOSARTAN. [Suspect]
     Active Substance: LOSARTAN
     Indication: HYPERTENSION
     Dosage: 50 MG, Q24H (APPROXIMATELY 15 YEARS AGO)
     Route: 048
  2. HYDROCHLOROTHIAZIDE. [Concomitant]
     Active Substance: HYDROCHLOROTHIAZIDE
     Indication: PRODUCT USED FOR UNKNOWN INDICATION
     Dosage: 20 MG, Q24H
     Route: 048

REACTIONS (6)
  - Idiopathic urticaria [Unknown]
  - Pain [Unknown]
  - Bone disorder [Unknown]
  - Ear discomfort [Unknown]
  - Head discomfort [Unknown]
  - Deafness [Unknown]
